FAERS Safety Report 18963408 (Version 2)
Quarter: 2021Q1

REPORT INFORMATION
  Report Type: Report from Study
  Country: US (occurrence: US)
  Receive Date: 20210303
  Receipt Date: 20210312
  Transmission Date: 20210420
  Serious: Yes (Hospitalization, Other)
  Sender: FDA-Public Use
  Company Number: US-PFIZER INC-2021026075

PATIENT
  Age: 60 Year
  Sex: Female

DRUGS (4)
  1. IBRANCE [Suspect]
     Active Substance: PALBOCICLIB
     Indication: BREAST CANCER
     Dosage: 125 MG, CYCLIC (DAILY 21 DAYS AND OFF FOR 7 DAYS)
     Route: 048
     Dates: start: 20210101
  2. IBRANCE [Suspect]
     Active Substance: PALBOCICLIB
     Dosage: 100 MG, CYCLIC (DAILY FOR 21 DAYS AND OFF FOR 7 DAYS)
     Route: 048
     Dates: start: 20210202, end: 20210217
  3. IBRANCE [Suspect]
     Active Substance: PALBOCICLIB
     Dosage: 100 MG, CYCLIC (DAILY FOR 21 DAYS AND OFF FOR 7 DAYS)
     Route: 048
     Dates: start: 20210217
  4. ZOMETA [Concomitant]
     Active Substance: ZOLEDRONIC ACID
     Dosage: UNK

REACTIONS (13)
  - Renal impairment [Unknown]
  - Pyrexia [Unknown]
  - Toothache [Recovered/Resolved]
  - Blood count abnormal [Recovering/Resolving]
  - White blood cell count abnormal [Recovering/Resolving]
  - Nausea [Unknown]
  - Chills [Unknown]
  - Dehydration [Unknown]
  - Product dose omission issue [Unknown]
  - Platelet count decreased [Unknown]
  - Decreased appetite [Unknown]
  - Pain in jaw [Unknown]
  - Malaise [Unknown]

NARRATIVE: CASE EVENT DATE: 202101
